FAERS Safety Report 19939916 (Version 1)
Quarter: 2021Q4

REPORT INFORMATION
  Report Type: Report from Study
  Country: None (occurrence: NZ)
  Receive Date: 20211012
  Receipt Date: 20211012
  Transmission Date: 20220303
  Serious: Yes (Other)
  Sender: FDA-Public Use
  Company Number: NZ-ABBVIE-21K-118-4112878-00

PATIENT
  Weight: 75.9 kg

DRUGS (1)
  1. HUMIRA [Suspect]
     Active Substance: ADALIMUMAB
     Indication: Crohn^s disease
     Route: 058

REACTIONS (6)
  - Colonic abscess [Unknown]
  - Anal fistula [Unknown]
  - Drug ineffective [Unknown]
  - Drug level decreased [Unknown]
  - Impaired healing [Unknown]
  - Hepatitis [Unknown]
